FAERS Safety Report 19678275 (Version 1)
Quarter: 2021Q3

REPORT INFORMATION
  Report Type: Spontaneous
  Country: US (occurrence: US)
  Receive Date: 20210809
  Receipt Date: 20210809
  Transmission Date: 20211014
  Serious: Yes (Other)
  Sender: FDA-Public Use
  Company Number: US-BIOHAVEN PHARMACEUTICALS-2021BHV00946

PATIENT
  Age: 59 Year
  Sex: Female
  Weight: 99.77 kg

DRUGS (4)
  1. NURTEC ODT [Suspect]
     Active Substance: RIMEGEPANT SULFATE
     Indication: MIGRAINE
     Dosage: 75 MG, 1X/DAY AS NEEDED
     Route: 048
     Dates: start: 20210720, end: 20210720
  2. HYDROXYCHLOROQUINE [Concomitant]
     Active Substance: HYDROXYCHLOROQUINE
  3. LOSARTAN. [Concomitant]
     Active Substance: LOSARTAN
  4. JANUVIA [Concomitant]
     Active Substance: SITAGLIPTIN PHOSPHATE

REACTIONS (7)
  - Feeling abnormal [Not Recovered/Not Resolved]
  - Unresponsive to stimuli [Recovering/Resolving]
  - Headache [Recovering/Resolving]
  - Blindness [Recovering/Resolving]
  - Visual impairment [Not Recovered/Not Resolved]
  - Seizure [Recovering/Resolving]
  - Fatigue [Not Recovered/Not Resolved]

NARRATIVE: CASE EVENT DATE: 202107
